FAERS Safety Report 8690880 (Version 2)
Quarter: 2013Q1

REPORT INFORMATION
  Report Type: Spontaneous
  Country: AU (occurrence: AU)
  Receive Date: 20120730
  Receipt Date: 20130115
  Transmission Date: 20140127
  Serious: Yes (Other)
  Sender: FDA-Public Use
  Company Number: AU-ROCHE-1092812

PATIENT
  Age: 69 Year
  Sex: Female
  Weight: 80 kg

DRUGS (7)
  1. METALYSE [Suspect]
     Indication: ELECTROCARDIOGRAM ST SEGMENT ELEVATION
     Route: 065
     Dates: start: 20120713
  2. METALYSE [Suspect]
     Indication: THROMBOLYSIS
  3. CLEXANE [Concomitant]
     Indication: ELECTROCARDIOGRAM ST SEGMENT ELEVATION
     Route: 042
  4. CLOPIDOGREL [Concomitant]
     Indication: ELECTROCARDIOGRAM ST SEGMENT ELEVATION
     Route: 048
     Dates: start: 20120713
  5. MORPHINE [Concomitant]
     Indication: ELECTROCARDIOGRAM ST SEGMENT ELEVATION
     Route: 048
     Dates: start: 20120713
  6. ONDANSETRON [Concomitant]
     Indication: ELECTROCARDIOGRAM ST SEGMENT ELEVATION
     Route: 048
     Dates: start: 20120713
  7. CLEXANE [Concomitant]
     Indication: ELECTROCARDIOGRAM ST SEGMENT ELEVATION
     Route: 058
     Dates: start: 20120713

REACTIONS (6)
  - Chest pain [Recovered/Resolved]
  - Electrocardiogram ST segment elevation [Recovered/Resolved]
  - Electrocardiogram ST segment depression [Recovered/Resolved]
  - Bradycardia [Recovered/Resolved]
  - Product quality issue [Unknown]
  - Drug ineffective [Unknown]
